FAERS Safety Report 8791414 (Version 1)
Quarter: 2012Q4

REPORT INFORMATION
  Report Type: Spontaneous
  Country: US (occurrence: None)
  Receive Date: 20120914
  Receipt Date: 20120914
  Transmission Date: 20130627
  Serious: Yes (Hospitalization)
  Sender: FDA-Public Use
  Company Number: None

PATIENT
  Age: 85 Year
  Sex: Male
  Weight: 86.18 kg

DRUGS (2)
  1. ALLOPURINOL [Suspect]
     Indication: GOUT
  2. ALLOPURINOL [Suspect]
     Indication: PROPHYLAXIS

REACTIONS (6)
  - Oedema peripheral [None]
  - Rash [None]
  - Rash [None]
  - Oedema peripheral [None]
  - Local swelling [None]
  - Swelling [None]
